FAERS Safety Report 8913365 (Version 1)
Quarter: 2012Q4

REPORT INFORMATION
  Report Type: Spontaneous
  Country: GB (occurrence: None)
  Receive Date: 20121113
  Receipt Date: 20121113
  Transmission Date: 20130627
  Serious: Yes (Other)
  Sender: FDA-Public Use
  Company Number: NPIL/SEV/H/2012/46

PATIENT
  Age: 43 Year

DRUGS (8)
  1. SEVOFLURANE [Suspect]
     Indication: ANESTHESIA
     Route: 055
  2. SEVOFLURANE [Suspect]
     Indication: SURGERY
     Route: 055
  3. CARBAMEZAPINE [Concomitant]
  4. CLOBAZAM [Concomitant]
  5. FENTANYL [Concomitant]
  6. THIOPENTONE [Concomitant]
  7. DICLOFENAC [Concomitant]
  8. MORPHINE [Concomitant]

REACTIONS (2)
  - Obstructive airways disorder [None]
  - Hypoxia [None]
